FAERS Safety Report 11843456 (Version 1)
Quarter: 2015Q4

REPORT INFORMATION
  Report Type: Spontaneous
  Country: IT (occurrence: IT)
  Receive Date: 20151217
  Receipt Date: 20151217
  Transmission Date: 20160305
  Serious: Yes (Other)
  Sender: FDA-Public Use
  Company Number: IT-ROCHE-1678425

PATIENT
  Age: 68 Year
  Sex: Female

DRUGS (4)
  1. AVASTIN [Suspect]
     Active Substance: BEVACIZUMAB
     Indication: COLON CANCER
     Dosage: 1 X 100 MG VIAL?LAST DOSE PRIOR TO SAE: 20/OCT/2015
     Route: 042
     Dates: start: 20151006, end: 20151124
  2. IRINOTECAN [Suspect]
     Active Substance: IRINOTECAN
     Indication: COLON CANCER
     Dosage: 20 MG/ML 1 X 100 MG / 5 ML GLASS VIAL?LAST DOSE PRIOR TO SAE: 20/OCT/2015
     Route: 042
     Dates: start: 20151006, end: 20151124
  3. IRINOTECAN [Suspect]
     Active Substance: IRINOTECAN
     Dosage: 20 MG/ML 1 X 40 MG / 2 ML GLASS VIAL
     Route: 042
     Dates: start: 20151006, end: 20151124
  4. FLUOROURACIL. [Suspect]
     Active Substance: FLUOROURACIL
     Indication: COLON CANCER
     Dosage: 5 G / 100 ML 1 X 100 ML VIAL?LAST DOSE PRIOR TO SAE: 20/OCT/2015
     Route: 041
     Dates: start: 20151006, end: 20151124

REACTIONS (2)
  - Mucosal inflammation [Recovering/Resolving]
  - Diarrhoea [Recovering/Resolving]

NARRATIVE: CASE EVENT DATE: 20151124
